FAERS Safety Report 19544101 (Version 1)
Quarter: 2021Q3

REPORT INFORMATION
  Report Type: Spontaneous
  Country: US (occurrence: US)
  Receive Date: 20210713
  Receipt Date: 20210713
  Transmission Date: 20211014
  Serious: Yes (Other)
  Sender: FDA-Public Use
  Company Number: US-PFIZER INC-2020303956

PATIENT
  Age: 70 Year

DRUGS (1)
  1. PREMPRO [Suspect]
     Active Substance: ESTROGENS, CONJUGATED\MEDROXYPROGESTERONE ACETATE
     Dosage: 1 DF, DAILY (STRENGTH: 0.625 MG/ ORAL TABLET DAILY)
     Route: 048

REACTIONS (2)
  - Diabetes mellitus [Unknown]
  - Product prescribing error [Unknown]
